FAERS Safety Report 4591539-7 (Version None)
Quarter: 2005Q1

REPORT INFORMATION
  Report Type: 
  Country: None (occurrence: None)
  Receive Date: 20050222
  Receipt Date: 20050215
  Transmission Date: 20050727
  Serious: Yes (Hospitalization)
  Sender: FDA-Public Use
  Company Number: PHEH2005US02046

PATIENT
  Age: 25 Year
  Sex: Female
  Weight: 47.6 kg

DRUGS (1)
  1. LAMISIL AT SPRAY PUMP (NCH)(TERBINAFINE HYDROCHLORIDE) SPRAY [Suspect]
     Indication: TINEA PEDIS
     Dosage: QD, TOPICAL
     Route: 061
     Dates: start: 20050105, end: 20050107

REACTIONS (5)
  - BLOOD SODIUM DECREASED [None]
  - CONFUSIONAL STATE [None]
  - DEHYDRATION [None]
  - LETHARGY [None]
  - RASH [None]
